FAERS Safety Report 6739256-9 (Version None)
Quarter: 2010Q2

REPORT INFORMATION
  Report Type: 
  Country: None (occurrence: None)
  Receive Date: 20100524
  Receipt Date: 20100524
  Transmission Date: 20101027
  Serious: Yes (Other)
  Sender: FDA-Public Use
  Company Number: None

PATIENT
  Age: 7 Year
  Sex: Female
  Weight: 20.8655 kg

DRUGS (1)
  1. SINGULAIR [Suspect]
     Indication: BRONCHIAL OBSTRUCTION
     Dosage: 5MG DAILY PO
     Route: 048
     Dates: start: 20100426, end: 20100518

REACTIONS (8)
  - AGITATION [None]
  - ANGER [None]
  - CRYING [None]
  - DEPRESSED MOOD [None]
  - DEPRESSION [None]
  - MOOD ALTERED [None]
  - PERSONALITY CHANGE [None]
  - THINKING ABNORMAL [None]
